FAERS Safety Report 9816849 (Version 2)
Quarter: 2014Q1

REPORT INFORMATION
  Report Type: Spontaneous
  Country: US (occurrence: US)
  Receive Date: 20140114
  Receipt Date: 20140114
  Transmission Date: 20141002
  Serious: Yes (Other)
  Sender: FDA-Public Use
  Company Number: US-GE HEALTHCARE MEDICAL DIAGNOSTICS-OSCN-PR-0902S-0101

PATIENT
  Age: 63 Year
  Sex: Female

DRUGS (3)
  1. OMNISCAN [Suspect]
     Indication: TRANSPLANT EVALUATION
     Dates: start: 20050225, end: 20050225
  2. OMNISCAN [Suspect]
     Dates: start: 20061113, end: 20061113
  3. GADOLINIUM (UNSPECIFIED) [Suspect]
     Indication: PRODUCT USED FOR UNKNOWN INDICATION

REACTIONS (5)
  - Nephrogenic systemic fibrosis [Not Recovered/Not Resolved]
  - Dry skin [Not Recovered/Not Resolved]
  - Skin lesion [Not Recovered/Not Resolved]
  - Prurigo [Not Recovered/Not Resolved]
  - Skin hypertrophy [Not Recovered/Not Resolved]
